FAERS Safety Report 5696506-8 (Version None)
Quarter: 2008Q2

REPORT INFORMATION
  Report Type: 
  Country: None (occurrence: None)
  Receive Date: 20080408
  Receipt Date: 20080403
  Transmission Date: 20081010
  Serious: Yes (Hospitalization)
  Sender: FDA-Public Use
  Company Number: US-BRISTOL-MYERS SQUIBB COMPANY-14137574

PATIENT
  Age: 67 Year
  Sex: Male
  Weight: 73 kg

DRUGS (7)
  1. GLUCOPHAGE [Suspect]
     Indication: DIABETES MELLITUS
     Dosage: INCREASED TO 1000MG BID. ON 03/30/08, REDUCED TO 1 TAB IN MORNING AND HALF TAB AT 6PM
     Dates: start: 20000101
  2. METFORMIN HCL [Suspect]
     Dates: start: 20071001
  3. ACIPHEX [Concomitant]
  4. LIPITOR [Concomitant]
  5. PROSCAR [Concomitant]
  6. PRINIVIL [Concomitant]
  7. LOVAZA [Concomitant]

REACTIONS (7)
  - BLOOD PRESSURE INCREASED [None]
  - DIZZINESS [None]
  - DRUG INEFFECTIVE [None]
  - INSOMNIA [None]
  - MUSCULOSKELETAL STIFFNESS [None]
  - PAIN [None]
  - TINNITUS [None]
